FAERS Safety Report 7091765-1 (Version None)
Quarter: 2010Q4

REPORT INFORMATION
  Report Type: 
  Country: None (occurrence: None)
  Receive Date: 20101109
  Receipt Date: 20101102
  Transmission Date: 20110411
  Serious: No
  Sender: FDA-Public Use
  Company Number: JP-MERCK-1010USA02366

PATIENT
  Age: 61 Year
  Sex: Male
  Weight: 63 kg

DRUGS (7)
  1. JANUVIA [Suspect]
     Indication: TYPE 2 DIABETES MELLITUS
     Route: 048
     Dates: start: 20100723
  2. GLYBURIDE [Concomitant]
     Route: 048
     Dates: start: 20040101
  3. METFORMIN HCL [Concomitant]
     Route: 048
     Dates: start: 20040101
  4. ACTOS [Concomitant]
     Route: 048
     Dates: start: 20100122, end: 20100722
  5. DIOVAN [Concomitant]
     Route: 048
     Dates: start: 20040101
  6. PURSENNID [Concomitant]
     Route: 048
     Dates: start: 20040101
  7. MAGLAX [Concomitant]
     Route: 048
     Dates: start: 20040101

REACTIONS (1)
  - HYPERGLYCAEMIA [None]
